FAERS Safety Report 8201560-5 (Version None)
Quarter: 2012Q1

REPORT INFORMATION
  Report Type: 
  Country: None (occurrence: None)
  Receive Date: 20120312
  Receipt Date: 20120309
  Transmission Date: 20120608
  Serious: No
  Sender: FDA-Public Use
  Company Number: US-TEVA-327231USA

PATIENT
  Sex: Female
  Weight: 66.284 kg

DRUGS (1)
  1. PLAN B ONE-STEP [Suspect]
     Indication: POST COITAL CONTRACEPTION
     Dosage: 1.5 MILLIGRAM;
     Route: 048
     Dates: start: 20120221, end: 20120221

REACTIONS (3)
  - MENSTRUATION IRREGULAR [None]
  - PREGNANCY AFTER POST COITAL CONTRACEPTION [None]
  - DRUG INEFFECTIVE [None]
